FAERS Safety Report 16177255 (Version 2)
Quarter: 2025Q4

REPORT INFORMATION
  Report Type: Report from Study
  Country: EU (occurrence: EU)
  Receive Date: 20190410
  Receipt Date: 20251203
  Transmission Date: 20260119
  Serious: Yes (Life-Threatening, Other)
  Sender: ACCORD
  Company Number: EU-ACCORD-110999

PATIENT
  Age: 67 Year
  Sex: Male

DRUGS (3)
  1. MYCOPHENOLATE MOFETIL [Suspect]
     Active Substance: MYCOPHENOLATE MOFETIL
     Indication: Immunosuppression
  2. TACROLIMUS [Suspect]
     Active Substance: TACROLIMUS
     Indication: Immunosuppression
  3. PREDNISOLONE [Suspect]
     Active Substance: PREDNISOLONE
     Indication: Immunosuppression

REACTIONS (2)
  - Endocarditis [Unknown]
  - Cerebrovascular accident [Unknown]
